FAERS Safety Report 7622536-2 (Version None)
Quarter: 2011Q3

REPORT INFORMATION
  Report Type: 
  Country: None (occurrence: None)
  Receive Date: 20110719
  Receipt Date: 20110719
  Transmission Date: 20111222
  Serious: Yes (Other)
  Sender: FDA-Public Use
  Company Number: None

PATIENT
  Age: 49 Year
  Sex: Male
  Weight: 72.5755 kg

DRUGS (1)
  1. OXYBUTYNIN [Suspect]
     Indication: AUTOMATIC BLADDER
     Dosage: 1 DAILY PO
     Route: 048
     Dates: start: 20110630, end: 20110714

REACTIONS (3)
  - HICCUPS [None]
  - OROPHARYNGEAL PAIN [None]
  - URINARY RETENTION [None]
